FAERS Safety Report 11264047 (Version 2)
Quarter: 2015Q3

REPORT INFORMATION
  Report Type: Spontaneous
  Country: US (occurrence: None)
  Receive Date: 20150709
  Receipt Date: 20150720
  Transmission Date: 20151125
  Serious: Yes (Other)
  Sender: FDA-Public Use
  Company Number: 2015TASUS000837

PATIENT
  Age: 73 Year
  Sex: Male
  Weight: 74.4 kg

DRUGS (16)
  1. MYRBETRIQ [Concomitant]
     Active Substance: MIRABEGRON
  2. B3 VITAMIN [Concomitant]
  3. ISOSORBIDE MONONITRATE (ISOSORBIDE MONONITRATE) [Concomitant]
     Active Substance: ISOSORBIDE MONONITRATE
  4. B-12 (CYANOCOBALAMIN) [Concomitant]
  5. FISH OIL (FISH OIL) [Concomitant]
     Active Substance: FISH OIL
  6. LOSARTAN (LOSARTAN POTASSIUM) [Concomitant]
  7. CARTIA XT (DILTIAZEM HYDROCHLORIDE) [Concomitant]
     Active Substance: DILTIAZEM HYDROCHLORIDE
  8. PRAVASTATIN (PRAVASTATIN SODIUM) [Concomitant]
  9. POTASSIUM (POTASSIUM CHLORIDE) [Concomitant]
  10. HETLIOZ [Suspect]
     Active Substance: TASIMELTEON
     Indication: CIRCADIAN RHYTHM SLEEP DISORDER
     Dosage: 07/16/2014
     Route: 048
     Dates: start: 20140716, end: 201506
  11. BABY ASPIRIN (ACETYLSALICYLIC ACID) [Concomitant]
     Active Substance: ASPIRIN
  12. SYMBICORT [Concomitant]
     Active Substance: BUDESONIDE\FORMOTEROL FUMARATE DIHYDRATE
  13. FOLIC ACID (FOLIC ACID) [Concomitant]
     Active Substance: FOLIC ACID
  14. ARICEPT [Suspect]
     Active Substance: DONEPEZIL HYDROCHLORIDE
     Indication: DEMENTIA ALZHEIMER^S TYPE
     Dates: start: 20150618
  15. VITAMIN C [Concomitant]
     Active Substance: ASCORBIC ACID
  16. RAPOAFLO (SILODOSIN) [Concomitant]

REACTIONS (3)
  - Drug ineffective [None]
  - Dementia Alzheimer^s type [None]
  - Insomnia [None]
